FAERS Safety Report 4728855-1 (Version None)
Quarter: 2005Q3

REPORT INFORMATION
  Report Type: 
  Country: None (occurrence: None)
  Receive Date: 20050729
  Receipt Date: 20040411
  Transmission Date: 20060218
  Serious: No
  Sender: FDA-Public Use
  Company Number: US-GLAXOSMITHKLINE-A0553612A

PATIENT
  Age: 55 Year
  Sex: Female

DRUGS (3)
  1. IMITREX [Suspect]
     Indication: MIGRAINE
     Dosage: 100MG UNKNOWN
     Route: 048
  2. SUDAFED 12 HOUR [Concomitant]
  3. ALLEGRA D [Concomitant]

REACTIONS (3)
  - CHEST PAIN [None]
  - PAIN IN EXTREMITY [None]
  - SHOULDER PAIN [None]
